FAERS Safety Report 17455770 (Version 4)
Quarter: 2024Q4

REPORT INFORMATION
  Report Type: Spontaneous
  Country: KR (occurrence: KR)
  Receive Date: 20200225
  Receipt Date: 20241227
  Transmission Date: 20250114
  Serious: Yes (Life-Threatening, Hospitalization, Other)
  Sender: ALKEM
  Company Number: None

PATIENT
  Age: 65 Year
  Sex: Female
  Weight: 56.7 kg

DRUGS (10)
  1. MYCOPHENOLATE MOFETIL [Suspect]
     Active Substance: MYCOPHENOLATE MOFETIL
     Indication: Pemphigus
     Dosage: 2 DOSAGE FORM, QD (TABLET) (MYREPT 500 MG)
     Route: 048
     Dates: start: 20180726
  2. MYCOPHENOLATE MOFETIL [Suspect]
     Active Substance: MYCOPHENOLATE MOFETIL
     Dosage: 1 G/DAY
     Route: 065
  3. PREDNISOLONE [Suspect]
     Active Substance: PREDNISOLONE
     Indication: Pemphigus
     Dosage: 1 DOSAGE FORM, QD
     Route: 048
     Dates: start: 20180726, end: 20181007
  4. PREDNISOLONE [Suspect]
     Active Substance: PREDNISOLONE
     Indication: Pemphigus
     Dosage: 1 DOSAGE FORM, QD
     Route: 048
     Dates: start: 20180726, end: 20181007
  5. TRUXIMA [Suspect]
     Active Substance: RITUXIMAB-ABBS
     Indication: Pemphigus
     Dosage: 2 DOSAGE FORM, ONCE IN 2 WEEKS
     Route: 042
     Dates: start: 20180727, end: 20180809
  6. TRUXIMA [Suspect]
     Active Substance: RITUXIMAB-ABBS
     Dosage: 2 DOSAGE FORM, ONCE IN 2 WEEKS (SOLUTION FOR INJECTION/INFUSION)
     Route: 042
     Dates: start: 20180810, end: 20180823
  7. DEXTROSE [Concomitant]
     Active Substance: DEXTROSE MONOHYDRATE
     Indication: Pemphigus
     Dosage: 500 MILLILITER (ONE PER CYCLE)
     Route: 042
     Dates: start: 20180728, end: 20180731
  8. Human Normal Immunoglobulin (Liv-gamma SN) [Concomitant]
     Indication: Pemphigus
     Dosage: 27.5 GRAM ONE PER CYCLE
     Route: 042
     Dates: start: 20180728, end: 20180731
  9. SODIUM CHLORIDE [Concomitant]
     Active Substance: SODIUM CHLORIDE
     Indication: Pemphigus
     Dosage: 500 MILLILITER, ONCE IN 2 WEEKS
     Route: 042
     Dates: start: 20180727, end: 20180809
  10. SODIUM CHLORIDE [Concomitant]
     Active Substance: SODIUM CHLORIDE
     Dosage: 500 MILLILITER, ONCE IN 2 WEEKS
     Route: 042
     Dates: start: 20180810, end: 20180823

REACTIONS (2)
  - Acute hepatic failure [Recovering/Resolving]
  - Hepatitis B reactivation [Recovering/Resolving]

NARRATIVE: CASE EVENT DATE: 20181007
